FAERS Safety Report 5757169 (Version 5)
Quarter: 2013Q1

REPORT INFORMATION
  Report Type: Spontaneous
  Country: US (occurrence: US)
  Receive Date: 20050302
  Receipt Date: 20130318
  Transmission Date: 20140127
  Serious: Yes (Hospitalization, Other)
  Sender: FDA-Public Use
  Company Number: 2005BI003595

PATIENT
  Age: 52 Year
  Sex: Female

DRUGS (21)
  1. NORVASC [Concomitant]
     Indication: HYPERTENSION
  2. AVONEX [Suspect]
     Indication: MULTIPLE SCLEROSIS
     Route: 030
     Dates: start: 20020907, end: 200308
  3. AVONEX [Suspect]
     Indication: MULTIPLE SCLEROSIS
     Route: 030
     Dates: start: 200308, end: 200503
  4. STEROIDS [Concomitant]
  5. WELLBUTRIN [Concomitant]
  6. ATIVAN [Concomitant]
  7. AMBIEN [Concomitant]
  8. BACLOFEN [Concomitant]
  9. TEGRETOL [Concomitant]
  10. SOLU MEDROL [Concomitant]
  11. AMANTADINE [Concomitant]
  12. PREDNISONE [Concomitant]
  13. PROCARDIA [Concomitant]
  14. SKELEXIN [Concomitant]
  15. URECHOLINE [Concomitant]
  16. TRICOR [Concomitant]
  17. IMDUR [Concomitant]
  18. ALTACE [Concomitant]
     Indication: HYPERTENSION
  19. HYDRALAZINE [Concomitant]
     Indication: HYPERTENSION
  20. LASIX [Concomitant]
  21. INDERAL [Concomitant]

REACTIONS (10)
  - Wound closure [Recovered/Resolved]
  - Hallucination [Unknown]
  - Dyspnoea [Recovered/Resolved]
  - Multiple sclerosis relapse [Not Recovered/Not Resolved]
  - Postoperative wound complication [Unknown]
  - Wound dehiscence [Unknown]
  - Impaired healing [Unknown]
  - Myocardial infarction [Recovered/Resolved with Sequelae]
  - Wound evisceration [Recovered/Resolved with Sequelae]
  - Postoperative wound infection [Recovered/Resolved with Sequelae]
